FAERS Safety Report 8990508 (Version 9)
Quarter: 2015Q2

REPORT INFORMATION
  Report Type: Report from Study
  Country: CA (occurrence: CA)
  Receive Date: 20121228
  Receipt Date: 20150623
  Transmission Date: 20150821
  Serious: Yes (Hospitalization, Other)
  Sender: FDA-Public Use
  Company Number: CA-ROCHE-1172577

PATIENT
  Age: 65 Year
  Sex: Female
  Weight: 52.21 kg

DRUGS (6)
  1. OMALIZUMAB [Suspect]
     Active Substance: OMALIZUMAB
     Indication: ASTHMA
     Route: 058
     Dates: start: 20050710
  2. OMALIZUMAB [Suspect]
     Active Substance: OMALIZUMAB
     Route: 058
     Dates: start: 20150421
  3. OMALIZUMAB [Suspect]
     Active Substance: OMALIZUMAB
     Route: 058
     Dates: start: 20051007
  4. OMALIZUMAB [Suspect]
     Active Substance: OMALIZUMAB
     Route: 058
     Dates: start: 20141126
  5. OMALIZUMAB [Suspect]
     Active Substance: OMALIZUMAB
     Route: 058
     Dates: start: 20140514
  6. OMALIZUMAB [Suspect]
     Active Substance: OMALIZUMAB
     Route: 058
     Dates: start: 20130206

REACTIONS (17)
  - Cardiac valve replacement complication [Unknown]
  - Insomnia [Recovering/Resolving]
  - Fatigue [Unknown]
  - Malaise [Unknown]
  - Rhinorrhoea [Recovering/Resolving]
  - Headache [Unknown]
  - Diverticulitis [Unknown]
  - Lung infection [Recovering/Resolving]
  - Tendon rupture [Recovering/Resolving]
  - Seasonal allergy [Unknown]
  - Asthma [Unknown]
  - Productive cough [Unknown]
  - Respiratory rate increased [Unknown]
  - Ear infection [Unknown]
  - Hypersensitivity [Unknown]
  - Blood pressure increased [Unknown]
  - Sinusitis [Unknown]

NARRATIVE: CASE EVENT DATE: 20070606
